FAERS Safety Report 5801402-9 (Version None)
Quarter: 2008Q2

REPORT INFORMATION
  Report Type: 
  Country: None (occurrence: None)
  Receive Date: 20080626
  Receipt Date: 20070720
  Transmission Date: 20081010
  Serious: No
  Sender: FDA-Public Use
  Company Number: 508179

PATIENT
  Age: 57 Year
  Sex: Female
  Weight: 120.7 kg

DRUGS (7)
  1. XELODA [Suspect]
     Indication: BREAST CANCER METASTATIC
     Dosage: 2500 MG 2 PER DAY
     Dates: start: 20070517
  2. XELODA [Suspect]
     Indication: METASTASES TO BONE
     Dosage: 2500 MG 2 PER DAY
     Dates: start: 20070517
  3. TAXOTERE [Suspect]
     Indication: BREAST CANCER METASTATIC
     Dosage: 75 MG/M2 1 PER 3 WEEK INTRAVENOUS
     Route: 042
     Dates: start: 20070517
  4. TAXOTERE [Suspect]
     Indication: METASTASES TO BONE
     Dosage: 75 MG/M2 1 PER 3 WEEK INTRAVENOUS
     Route: 042
     Dates: start: 20070517
  5. DIFLUCAN [Suspect]
     Indication: PROPHYLAXIS
     Dosage: 100 MG ORAL
     Route: 048
     Dates: start: 20070705, end: 20070709
  6. LASIX [Concomitant]
  7. NEUPOGEN [Concomitant]

REACTIONS (16)
  - ABDOMINAL PAIN [None]
  - DIARRHOEA [None]
  - FATIGUE [None]
  - FUNGAL INFECTION [None]
  - HYPOAESTHESIA [None]
  - HYPOAESTHESIA FACIAL [None]
  - LACRIMATION INCREASED [None]
  - NAUSEA [None]
  - ONYCHOLYSIS [None]
  - PAIN [None]
  - PALMAR-PLANTAR ERYTHRODYSAESTHESIA SYNDROME [None]
  - PYREXIA [None]
  - RASH [None]
  - VOMITING [None]
  - VULVOVAGINAL MYCOTIC INFECTION [None]
  - WHITE BLOOD CELL COUNT DECREASED [None]
